FAERS Safety Report 7569945-8 (Version None)
Quarter: 2011Q2

REPORT INFORMATION
  Report Type: 
  Country: None (occurrence: None)
  Receive Date: 20110622
  Receipt Date: 20110622
  Transmission Date: 20111010
  Serious: Yes (Other)
  Sender: FDA-Public Use
  Company Number: None

PATIENT
  Age: 65 Year
  Sex: Male

DRUGS (1)
  1. VICTOZA [Suspect]
     Indication: PANCREATITIS
     Dosage: 1.2MG DAILY SQ
     Route: 058
     Dates: start: 20110413, end: 20110621

REACTIONS (1)
  - PANCREATITIS [None]
